FAERS Safety Report 5204120-3 (Version None)
Quarter: 2007Q1

REPORT INFORMATION
  Report Type: 
  Country: None (occurrence: None)
  Receive Date: 20070110
  Receipt Date: 20051228
  Transmission Date: 20070707
  Serious: No
  Sender: FDA-Public Use
  Company Number: US-BRISTOL-MYERS SQUIBB COMPANY-13201066

PATIENT
  Age: 29 Year
  Sex: Male

DRUGS (2)
  1. ABILIFY [Suspect]
     Indication: HALLUCINATION
     Route: 048
     Dates: start: 20051111
  2. CYMBALTA [Concomitant]
     Dosage: MAY HAVE ADVANCED TO 60 MG ON DAY 4/5
     Route: 048

REACTIONS (1)
  - LIBIDO INCREASED [None]
